FAERS Safety Report 5078884-6 (Version None)
Quarter: 2006Q3

REPORT INFORMATION
  Report Type: 
  Country: None (occurrence: None)
  Receive Date: 20060814
  Receipt Date: 20060804
  Transmission Date: 20061208
  Serious: Yes (Hospitalization)
  Sender: FDA-Public Use
  Company Number: BR-BRISTOL-MYERS SQUIBB COMPANY-13467907

PATIENT
  Sex: Male

DRUGS (1)
  1. REYATAZ [Suspect]

REACTIONS (3)
  - BILIRUBIN CONJUGATED INCREASED [None]
  - HEPATITIS [None]
  - TRANSAMINASES INCREASED [None]
